FAERS Safety Report 23391423 (Version 1)
Quarter: 2024Q1

REPORT INFORMATION
  Report Type: Other
  Country: GB (occurrence: None)
  Receive Date: 20240111
  Receipt Date: 20240111
  Transmission Date: 20240410
  Serious: Yes (Hospitalization)
  Sender: FDA-Public Use
  Company Number: GB-ROCHE-3487708

PATIENT
  Sex: Female

DRUGS (3)
  1. TOCILIZUMAB [Suspect]
     Active Substance: TOCILIZUMAB
     Indication: Giant cell arteritis
     Route: 058
     Dates: start: 2022
  2. PREDNISOLONE [Concomitant]
     Active Substance: PREDNISOLONE
     Dosage: 5MG - 60MG DURING 1ST LOT, 40MG 2ND TIME STARTED, STARTED 40MG IN NOVEMBER AND IS TAPERING DOWN 10MG
  3. AMITRIPTYLINE [Concomitant]
     Active Substance: AMITRIPTYLINE

REACTIONS (9)
  - Dizziness [Unknown]
  - Ill-defined disorder [Unknown]
  - Gastrointestinal disorder [Unknown]
  - Blood pressure increased [Unknown]
  - Palpitations [Unknown]
  - Joint swelling [Unknown]
  - Diarrhoea [Unknown]
  - Brain fog [Unknown]
  - Constipation [Unknown]
